FAERS Safety Report 15067751 (Version 1)
Quarter: 2018Q2

REPORT INFORMATION
  Report Type: Spontaneous
  Country: US (occurrence: US)
  Receive Date: 20180626
  Receipt Date: 20180626
  Transmission Date: 20180711
  Serious: No
  Sender: FDA-Public Use
  Company Number: US-VIFOR (INTERNATIONAL) INC.-VIT-2018-05765

PATIENT
  Sex: Male

DRUGS (14)
  1. VELTASSA [Suspect]
     Active Substance: PATIROMER
     Indication: HYPERKALAEMIA
     Route: 048
     Dates: start: 20180522, end: 2018
  2. SENNOSIDE A+B~~DOCUSATE SODIUM [Concomitant]
  3. CARVEDILOL. [Concomitant]
     Active Substance: CARVEDILOL
  4. LANTUS [Concomitant]
     Active Substance: INSULIN GLARGINE
  5. GABAPENTIN. [Concomitant]
     Active Substance: GABAPENTIN
  6. PARACETAMOL [Concomitant]
     Active Substance: ACETAMINOPHEN
  7. BISACODYL. [Concomitant]
     Active Substance: BISACODYL
  8. PRAMIPEXOLE DIHYDROCHLORIDE. [Concomitant]
     Active Substance: PRAMIPEXOLE DIHYDROCHLORIDE
  9. NOVOLOG [Concomitant]
     Active Substance: INSULIN ASPART
  10. OMEPRAZOLE. [Concomitant]
     Active Substance: OMEPRAZOLE
  11. ATORVASTATIN CALCIUM. [Concomitant]
     Active Substance: ATORVASTATIN CALCIUM
  12. RENVELA [Concomitant]
     Active Substance: SEVELAMER CARBONATE
  13. RENAPLEX-D [Concomitant]
     Active Substance: VITAMINS
  14. FUROSEMIDE. [Concomitant]
     Active Substance: FUROSEMIDE

REACTIONS (1)
  - Unevaluable event [Unknown]

NARRATIVE: CASE EVENT DATE: 2018
